FAERS Safety Report 16656202 (Version 1)
Quarter: 2019Q3

REPORT INFORMATION
  Report Type: Report from Study
  Country: IR (occurrence: IR)
  Receive Date: 20190801
  Receipt Date: 20190801
  Transmission Date: 20191004
  Serious: Yes (Hospitalization, Other)
  Sender: FDA-Public Use
  Company Number: IR-MYLANLABS-2019M1071124

PATIENT
  Sex: Female

DRUGS (3)
  1. CICLOSPORIN [Interacting]
     Active Substance: CYCLOSPORINE
     Indication: RHEUMATOID ARTHRITIS
     Route: 065
  2. METHOTREXATE. [Suspect]
     Active Substance: METHOTREXATE
     Indication: RHEUMATOID ARTHRITIS
     Route: 065
  3. FOLATE [Concomitant]
     Active Substance: FOLATE SODIUM
     Indication: SUPPLEMENTATION THERAPY
     Route: 065

REACTIONS (7)
  - Toxicity to various agents [Unknown]
  - Labelled drug-drug interaction medication error [Unknown]
  - Anaemia [Unknown]
  - Skin lesion [Unknown]
  - Mucosal toxicity [Unknown]
  - Thrombocytopenia [Unknown]
  - Incorrect dose administered [Unknown]
